FAERS Safety Report 9659674 (Version 6)
Quarter: 2014Q2

REPORT INFORMATION
  Report Type: Spontaneous
  Country: JP (occurrence: JP)
  Receive Date: 20131031
  Receipt Date: 20140522
  Transmission Date: 20141212
  Serious: Yes (Other)
  Sender: FDA-Public Use
  Company Number: JP-JNJFOC-20131016692

PATIENT
  Age: 56 Year
  Sex: Male
  Weight: 52 kg

DRUGS (4)
  1. REMICADE [Suspect]
     Indication: CROHN^S DISEASE
     Route: 042
     Dates: start: 20120509, end: 20120509
  2. REMICADE [Suspect]
     Indication: CROHN^S DISEASE
     Route: 042
     Dates: start: 20120426, end: 20120426
  3. PENTASA [Concomitant]
     Indication: CROHN^S DISEASE
     Route: 048
  4. MIYA BM [Concomitant]
     Indication: CROHN^S DISEASE
     Route: 048

REACTIONS (3)
  - Thyroiditis subacute [Recovering/Resolving]
  - Hyperthyroidism [Recovering/Resolving]
  - Diarrhoea [Unknown]
